FAERS Safety Report 5344377-1 (Version None)
Quarter: 2007Q2

REPORT INFORMATION
  Report Type: 
  Country: None (occurrence: None)
  Receive Date: 20070604
  Receipt Date: 20070523
  Transmission Date: 20071010
  Serious: Yes (Death, Hospitalization, Other)
  Sender: FDA-Public Use
  Company Number: HQWYE321623MAY07

PATIENT
  Age: 77 Year
  Sex: Female

DRUGS (8)
  1. CORDARONE [Suspect]
     Indication: ATRIAL FIBRILLATION
     Route: 048
     Dates: start: 20061121, end: 20070106
  2. PREVISCAN [Concomitant]
     Dosage: 1.25 DF
     Route: 048
     Dates: start: 20061001
  3. PRETERAX [Concomitant]
     Dosage: UNKNOWN
     Route: 048
  4. DIFFU K [Concomitant]
     Route: 048
     Dates: start: 20061020
  5. ZELITREX [Concomitant]
     Indication: HERPES VIRUS INFECTION
     Route: 048
  6. NEURONTIN [Concomitant]
     Indication: NEURALGIA
     Route: 048
  7. BISOPROLOL FUMARATE [Suspect]
     Indication: ATRIAL FIBRILLATION
     Route: 048
     Dates: start: 20070108
  8. LASIX [Concomitant]
     Route: 048
     Dates: start: 20061020

REACTIONS (4)
  - CARDIO-RESPIRATORY ARREST [None]
  - CARDIOGENIC SHOCK [None]
  - HYPERTHYROIDISM [None]
  - LUNG DISORDER [None]
